FAERS Safety Report 5583417-1 (Version None)
Quarter: 2008Q1

REPORT INFORMATION
  Report Type: 
  Country: None (occurrence: None)
  Receive Date: 20080107
  Receipt Date: 20071226
  Transmission Date: 20080703
  Serious: Yes (Other)
  Sender: FDA-Public Use
  Company Number: US-PFIZER INC-2008000780

PATIENT
  Sex: Female
  Weight: 69.9 kg

DRUGS (12)
  1. LYRICA [Suspect]
     Indication: HEADACHE
  2. METOPROLOL [Concomitant]
  3. SIMVASTATIN [Concomitant]
  4. VITAMINS [Concomitant]
  5. NEXIUM [Concomitant]
  6. VITAMIN B COMPLEX CAP [Concomitant]
  7. VITAMIN D [Concomitant]
  8. CALCIUM [Concomitant]
  9. MAGNESIUM [Concomitant]
  10. FLAXSEED OIL [Concomitant]
  11. ACETYLSALICYLIC ACID SRT [Concomitant]
  12. TRAMADOL HCL [Concomitant]
     Dates: end: 20071201

REACTIONS (3)
  - FALL [None]
  - FEELING DRUNK [None]
  - FOOT DEFORMITY [None]
